FAERS Safety Report 5735774-0 (Version None)
Quarter: 2008Q2

REPORT INFORMATION
  Report Type: 
  Country: None (occurrence: None)
  Receive Date: 20080513
  Receipt Date: 20080505
  Transmission Date: 20081010
  Serious: Yes (Other)
  Sender: FDA-Public Use
  Company Number: DE-JNJFOC-20080500847

PATIENT
  Age: 5 Year
  Sex: Male

DRUGS (1)
  1. LEUSTATIN [Suspect]
     Indication: MALIGNANT HISTIOCYTOSIS
     Route: 042

REACTIONS (4)
  - BONE MARROW DISORDER [None]
  - DRUG INEFFECTIVE [None]
  - NEUTROPHIL COUNT DECREASED [None]
  - WHITE BLOOD CELL COUNT DECREASED [None]
